FAERS Safety Report 9736323 (Version 2)
Quarter: 2013Q4

REPORT INFORMATION
  Report Type: Spontaneous
  Country: IN (occurrence: IN)
  Receive Date: 20131206
  Receipt Date: 20131212
  Transmission Date: 20140711
  Serious: Yes (Other)
  Sender: FDA-Public Use
  Company Number: PHHY2013IN140420

PATIENT
  Age: 42 Year
  Sex: Male

DRUGS (1)
  1. 4-DIMETHYLAMINOPYRIDINE [Suspect]
     Indication: PULMONARY TUBERCULOSIS
     Dosage: 1 DF, QD
     Route: 048
     Dates: start: 201309, end: 20131126

REACTIONS (6)
  - Nausea [Recovering/Resolving]
  - Vomiting [Recovering/Resolving]
  - Abdominal pain [Recovering/Resolving]
  - Rash generalised [Recovering/Resolving]
  - Drug ineffective [Unknown]
  - Inappropriate schedule of drug administration [Unknown]
